FAERS Safety Report 5675045-4 (Version None)
Quarter: 2008Q1

REPORT INFORMATION
  Report Type: 
  Country: None (occurrence: None)
  Receive Date: 20080320
  Receipt Date: 20080311
  Transmission Date: 20080703
  Serious: Yes (Hospitalization)
  Sender: FDA-Public Use
  Company Number: FR-PFIZER INC-2008023106

PATIENT
  Sex: Female

DRUGS (3)
  1. RELPAX [Suspect]
     Indication: MIGRAINE
     Dosage: TEXT:1 DF
     Route: 048
     Dates: start: 20070919, end: 20070922
  2. BETAFERON [Suspect]
     Indication: MULTIPLE SCLEROSIS
     Dosage: TEXT:250NG
     Route: 058
  3. ESCITALOPRAM OXALATE [Suspect]
     Indication: MENTAL DISORDER
     Route: 048

REACTIONS (1)
  - INTESTINAL ISCHAEMIA [None]
